FAERS Safety Report 8029834-1 (Version None)
Quarter: 2011Q4

REPORT INFORMATION
  Report Type: 
  Country: None (occurrence: None)
  Receive Date: 20111130
  Receipt Date: 20110531
  Transmission Date: 20120403
  Serious: Yes (Other)
  Sender: FDA-Public Use
  Company Number: US200912002753

PATIENT
  Sex: Male

DRUGS (8)
  1. LANTUS [Concomitant]
  2. BETA BLOCKING AGENTS [Concomitant]
  3. INSULIN [Concomitant]
  4. LANTUS [Concomitant]
  5. EXENATIDE, DISPOSABLE DEVICE (EXENATIDE PEN ) PEN,DISPOSABLE [Concomitant]
  6. INSULIN [Concomitant]
  7. BYETTA [Suspect]
     Dosage: 5 UG, BID SUBCUTANEOUS
     Route: 058
     Dates: start: 20090101
  8. ORAL ANTIDIABETICS [Concomitant]

REACTIONS (5)
  - LIVER DISORDER [None]
  - PANCREATITIS [None]
  - INCREASED INSULIN REQUIREMENT [None]
  - OFF LABEL USE [None]
  - BLOOD GLUCOSE INCREASED [None]
